FAERS Safety Report 20526453 (Version 1)
Quarter: 2022Q1

REPORT INFORMATION
  Report Type: Spontaneous
  Country: US (occurrence: None)
  Receive Date: 20220228
  Receipt Date: 20220228
  Transmission Date: 20220423
  Serious: No
  Sender: FDA-Public Use
  Company Number: None

PATIENT
  Age: 71 Year
  Sex: Female

DRUGS (1)
  1. XELJANZ XR [Suspect]
     Active Substance: TOFACITINIB CITRATE
     Indication: Rheumatoid arthritis
     Dosage: FREQUENCY : DAILY;?
     Route: 048
     Dates: start: 202002

REACTIONS (7)
  - COVID-19 [None]
  - Therapy interrupted [None]
  - Thrombosis [None]
  - Stent placement [None]
  - Muscle spasms [None]
  - Muscle spasms [None]
  - Arthropathy [None]
